FAERS Safety Report 6674583-5 (Version None)
Quarter: 2010Q2

REPORT INFORMATION
  Report Type: 
  Country: None (occurrence: None)
  Receive Date: 20100409
  Receipt Date: 20100330
  Transmission Date: 20101027
  Serious: Yes (Other)
  Sender: FDA-Public Use
  Company Number: FR-ROCHE-486681

PATIENT
  Sex: Female
  Weight: 59 kg

DRUGS (2)
  1. TAMIFLU [Suspect]
     Indication: INFLUENZA
     Route: 048
     Dates: start: 20070221, end: 20070225
  2. TEXODIL [Concomitant]

REACTIONS (1)
  - ABORTION SPONTANEOUS [None]
